FAERS Safety Report 6816255-X (Version None)
Quarter: 2010Q2

REPORT INFORMATION
  Report Type: 
  Country: None (occurrence: None)
  Receive Date: 20100630
  Receipt Date: 20100618
  Transmission Date: 20101027
  Serious: Yes (Other)
  Sender: FDA-Public Use
  Company Number: ACO_00676_2010

PATIENT
  Age: 50 Year
  Sex: Female
  Weight: 62.5964 kg

DRUGS (7)
  1. ZANAFLEX [Suspect]
     Indication: TRAUMATIC BRAIN INJURY
     Dosage: 2 MG TID ORAL
     Route: 048
     Dates: start: 20100101, end: 20100402
  2. ZANAFLEX [Suspect]
     Indication: TRAUMATIC BRAIN INJURY
     Dosage: 2 MG BID ORAL
     Route: 048
     Dates: start: 20100324, end: 20100101
  3. ZANAFLEX [Suspect]
     Indication: TRAUMATIC BRAIN INJURY
     Dosage: 2 MG BID ORAL
     Route: 048
     Dates: start: 20100402, end: 20100101
  4. BACLOFEN [Concomitant]
  5. CELEXA [Concomitant]
  6. ASMANEX TWISTHALER [Concomitant]
  7. LAMICTAL [Concomitant]

REACTIONS (1)
  - HALLUCINATIONS, MIXED [None]
